FAERS Safety Report 5206458-2 (Version None)
Quarter: 2007Q1

REPORT INFORMATION
  Report Type: 
  Country: None (occurrence: None)
  Receive Date: 20070109
  Receipt Date: 20061226
  Transmission Date: 20070707
  Serious: Yes (Hospitalization)
  Sender: FDA-Public Use
  Company Number: 2006BI017500

PATIENT
  Age: 55 Year
  Sex: Female

DRUGS (8)
  1. NATALIZUMAB [Suspect]
     Indication: MULTIPLE SCLEROSIS
     Dosage: 300 MG;QM;IV
     Route: 030
     Dates: start: 20060826
  2. AMITRIPTYLINE HCL [Concomitant]
  3. DEPAKOTE [Concomitant]
  4. PROGESTERONE [Concomitant]
  5. RELPAX [Concomitant]
  6. ZYRTEC [Concomitant]
  7. PROVIGIL [Concomitant]
  8. TOPROL-XL [Concomitant]

REACTIONS (5)
  - CEREBRAL ISCHAEMIA [None]
  - DYSPHONIA [None]
  - LACUNAR INFARCTION [None]
  - TRANSIENT ISCHAEMIC ATTACK [None]
  - UPPER RESPIRATORY TRACT INFECTION [None]
